FAERS Safety Report 7469468-0 (Version None)
Quarter: 2011Q2

REPORT INFORMATION
  Report Type: 
  Country: None (occurrence: None)
  Receive Date: 20110429
  Receipt Date: 20110413
  Transmission Date: 20111010
  Serious: Yes (Hospitalization, Other)
  Sender: FDA-Public Use
  Company Number: 2011040074

PATIENT
  Age: 35 Year
  Sex: Female

DRUGS (2)
  1. ZOLPIDEM [Suspect]
     Dosage: 10-20 MG
  2. COLD SYRUP [Concomitant]

REACTIONS (15)
  - INSOMNIA [None]
  - ANXIETY [None]
  - DYSKINESIA [None]
  - INTENTIONAL DRUG MISUSE [None]
  - DRUG WITHDRAWAL SYNDROME [None]
  - PALPITATIONS [None]
  - PROTRUSION TONGUE [None]
  - ALTERED STATE OF CONSCIOUSNESS [None]
  - GRAND MAL CONVULSION [None]
  - DYSPNOEA [None]
  - INAPPROPRIATE SCHEDULE OF DRUG ADMINISTRATION [None]
  - FACIAL SPASM [None]
  - INCORRECT DOSE ADMINISTERED [None]
  - DRUG DEPENDENCE [None]
  - DRUG WITHDRAWAL CONVULSIONS [None]
